FAERS Safety Report 8125460-4 (Version None)
Quarter: 2012Q1

REPORT INFORMATION
  Report Type: 
  Country: None (occurrence: None)
  Receive Date: 20120209
  Receipt Date: 20120203
  Transmission Date: 20120608
  Serious: Yes (Death, Other)
  Sender: FDA-Public Use
  Company Number: US-PFIZER INC-2011204177

PATIENT
  Sex: Male

DRUGS (1)
  1. CHANTIX [Suspect]
     Indication: SMOKING CESSATION THERAPY
     Dosage: 0.5 TO 1.0 MG
     Dates: start: 20100615, end: 20101001

REACTIONS (4)
  - COMPLETED SUICIDE [None]
  - ANXIETY [None]
  - AGITATION [None]
  - DEPRESSION [None]
